FAERS Safety Report 11472102 (Version 5)
Quarter: 2015Q4

REPORT INFORMATION
  Report Type: Spontaneous
  Country: US (occurrence: US)
  Receive Date: 20150908
  Receipt Date: 20151210
  Transmission Date: 20160304
  Serious: No
  Sender: FDA-Public Use
  Company Number: US-PFIZER INC-2015283920

PATIENT
  Age: 49 Year
  Sex: Male

DRUGS (1)
  1. SUTENT [Suspect]
     Active Substance: SUNITINIB MALATE
     Indication: CARCINOID TUMOUR
     Dosage: 25 MG, DAILY, CYCLIC

REACTIONS (14)
  - Abdominal discomfort [Unknown]
  - Throat irritation [Unknown]
  - Palmar-plantar erythrodysaesthesia syndrome [Unknown]
  - Hypoaesthesia [Unknown]
  - Oesophageal pain [Unknown]
  - Dysgeusia [Unknown]
  - Dry skin [Unknown]
  - Pruritus [Unknown]
  - Paraesthesia [Unknown]
  - Rash [Unknown]
  - Glossodynia [Unknown]
  - Dyspepsia [Unknown]
  - Oral pain [Unknown]
  - Product use issue [Unknown]
